FAERS Safety Report 10488596 (Version 1)
Quarter: 2014Q4

REPORT INFORMATION
  Report Type: Spontaneous
  Country: US (occurrence: None)
  Receive Date: 20141001
  Receipt Date: 20141001
  Transmission Date: 20150528
  Serious: Yes (Disabling)
  Sender: FDA-Public Use
  Company Number: None

PATIENT
  Age: 67 Year
  Sex: Female
  Weight: 58.97 kg

DRUGS (1)
  1. TERBINAFINE HYDOCHLORIDE [Suspect]
     Active Substance: TERBINAFINE HYDROCHLORIDE
     Indication: ONYCHOMYCOSIS
     Dosage: 1 TAB BY MOUTH PER DAY
     Route: 048
     Dates: start: 20140520, end: 20140620

REACTIONS (6)
  - Normochromic normocytic anaemia [None]
  - White blood cell count decreased [None]
  - Platelet count decreased [None]
  - Neutropenia [None]
  - Trichorrhexis [None]
  - Alopecia [None]

NARRATIVE: CASE EVENT DATE: 20140515
